FAERS Safety Report 19021199 (Version 1)
Quarter: 2021Q1

REPORT INFORMATION
  Report Type: Spontaneous
  Country: PL (occurrence: PL)
  Receive Date: 20210317
  Receipt Date: 20210317
  Transmission Date: 20210420
  Serious: Yes (Other)
  Sender: FDA-Public Use
  Company Number: PL-TEVA-2021-PL-1890179

PATIENT
  Age: 59 Year
  Sex: Male
  Weight: 90 kg

DRUGS (2)
  1. LEVOXA [Suspect]
     Active Substance: LEVOFLOXACIN
     Indication: TONSILLITIS
     Dosage: 500 MG
     Route: 048
     Dates: start: 20181103, end: 20181104
  2. LEVOXA [Suspect]
     Active Substance: LEVOFLOXACIN
     Indication: PHARYNGITIS

REACTIONS (2)
  - Tongue oedema [Recovered/Resolved]
  - Lip oedema [Recovered/Resolved]

NARRATIVE: CASE EVENT DATE: 20181103
